FAERS Safety Report 7410986-9 (Version None)
Quarter: 2011Q2

REPORT INFORMATION
  Report Type: 
  Country: None (occurrence: None)
  Receive Date: 20110413
  Receipt Date: 20110329
  Transmission Date: 20111010
  Serious: Yes (Other)
  Sender: FDA-Public Use
  Company Number: US-TYCO HEALTHCARE/MALLINCKRODT-T201100746

PATIENT
  Sex: Female

DRUGS (3)
  1. MORPHINE [Suspect]
     Dosage: UNK
  2. EXALGO [Suspect]
     Dosage: UNK
  3. DURAGESIC-100 [Suspect]
     Dosage: UNK

REACTIONS (2)
  - DRUG EXPOSURE DURING PREGNANCY [None]
  - PREMATURE LABOUR [None]
